FAERS Safety Report 7617389 (Version 5)
Quarter: 2012Q4

REPORT INFORMATION
  Report Type: 
  Country: JP (occurrence: US)
  Receive Date: 20101005
  Receipt Date: 20121002
  Transmission Date: 20130627
  Serious: Yes (Disabling, Other)
  Sender: FDA-Public Use
  Company Number: US-JNJFOC-20100908992

PATIENT
  Age: 78 None
  Sex: Male
  Weight: 96.16 kg

DRUGS (5)
  1. LEVAQUIN [Suspect]
     Indication: CHOLECYSTITIS ACUTE
     Route: 048
     Dates: start: 200909, end: 200909
  2. LEVAQUIN [Suspect]
     Indication: GALLBLADDER DISORDER
     Route: 048
     Dates: start: 200909, end: 200909
  3. LEVAQUIN [Suspect]
     Indication: BACTERIAL INFECTION
     Route: 048
  4. DILTIAZEM [Concomitant]
     Indication: HYPERTENSION
     Route: 048
  5. BENICAR [Concomitant]
     Indication: HYPERTENSION
     Route: 048

REACTIONS (13)
  - Tendon disorder [Not Recovered/Not Resolved]
  - Tendon rupture [Not Recovered/Not Resolved]
  - Joint swelling [Recovering/Resolving]
  - Oedema [Not Recovered/Not Resolved]
  - Foot deformity [Not Recovered/Not Resolved]
  - Arthralgia [Not Recovered/Not Resolved]
  - Gait disturbance [Not Recovered/Not Resolved]
  - Foot deformity [Not Recovered/Not Resolved]
  - Arthralgia [Not Recovered/Not Resolved]
  - Tendon pain [Not Recovered/Not Resolved]
  - Tendon injury [Unknown]
  - Oedema peripheral [Not Recovered/Not Resolved]
  - Back disorder [Not Recovered/Not Resolved]
